FAERS Safety Report 7522593-8 (Version None)
Quarter: 2011Q2

REPORT INFORMATION
  Report Type: 
  Country: None (occurrence: None)
  Receive Date: 20110603
  Receipt Date: 20110530
  Transmission Date: 20111010
  Serious: Yes (Hospitalization)
  Sender: FDA-Public Use
  Company Number: NL-ABBOTT-11P-114-0729510-00

PATIENT
  Sex: Male
  Weight: 65 kg

DRUGS (6)
  1. FOLIC ACID [Concomitant]
     Indication: VITAMIN SUPPLEMENTATION
     Dosage: ONCE EVERY 2 DAYS 1 TABLET
     Route: 048
     Dates: start: 20101101
  2. CALCIUMCARBONATE/COLECALCIFEROL [Concomitant]
     Indication: VITAMIN SUPPLEMENTATION
     Dosage: ONCE DAILY 1 TABLET
     Route: 048
     Dates: start: 20101101
  3. OMEPRAZOLE [Concomitant]
     Indication: GASTRIC DISORDER
     Route: 048
     Dates: start: 20101101
  4. PREDNISOLONE [Concomitant]
     Indication: ANTIINFLAMMATORY THERAPY
     Dosage: ONCE PER DAY
     Route: 048
     Dates: start: 20101101
  5. HUMIRA [Suspect]
     Indication: CROHN'S DISEASE
     Route: 058
     Dates: start: 20110325
  6. AZATHIOPRINE [Concomitant]
     Indication: CROHN'S DISEASE
     Route: 048
     Dates: end: 20110530

REACTIONS (4)
  - PYREXIA [None]
  - RASH [None]
  - JOINT SWELLING [None]
  - OEDEMA PERIPHERAL [None]
